FAERS Safety Report 20114421 (Version 1)
Quarter: 2021Q4

REPORT INFORMATION
  Report Type: Spontaneous
  Country: TW (occurrence: TW)
  Receive Date: 20211125
  Receipt Date: 20211125
  Transmission Date: 20220303
  Serious: Yes (Other)
  Sender: FDA-Public Use
  Company Number: TW-CHUGAI-2021028728

PATIENT
  Age: 37 Year
  Sex: Male

DRUGS (1)
  1. ALECENSA [Suspect]
     Active Substance: ALECTINIB HYDROCHLORIDE
     Indication: Lung adenocarcinoma
     Dosage: UNK
     Route: 048
     Dates: start: 20180514, end: 20190214

REACTIONS (1)
  - Neoplasm progression [Unknown]
